FAERS Safety Report 6155362-4 (Version None)
Quarter: 2009Q2

REPORT INFORMATION
  Report Type: 
  Country: None (occurrence: None)
  Receive Date: 20090415
  Receipt Date: 20090407
  Transmission Date: 20091009
  Serious: Yes (Hospitalization, Other)
  Sender: FDA-Public Use
  Company Number: US-AVENTIS-200912943US

PATIENT
  Sex: Female

DRUGS (2)
  1. LANTUS [Suspect]
     Dosage: DOSE: UNK
     Route: 058
  2. HUMALOG [Concomitant]
     Dosage: DOSE: FOR FOOD INTAKE

REACTIONS (5)
  - ASTHENIA [None]
  - BLOOD GLUCOSE INCREASED [None]
  - FEELING HOT [None]
  - HYPOGLYCAEMIC UNCONSCIOUSNESS [None]
  - KETOACIDOSIS [None]
